FAERS Safety Report 8672294 (Version 2)
Quarter: 2012Q4

REPORT INFORMATION
  Report Type: 
  Country: US (occurrence: US)
  Receive Date: 20120719
  Receipt Date: 20121107
  Transmission Date: 20130627
  Serious: Yes (Other)
  Sender: FDA-Public Use
  Company Number: US-MSD-1207USA004936

PATIENT
  Sex: Female

DRUGS (3)
  1. PEGINTRON [Suspect]
     Indication: HEPATITIS C
     Dosage: UNK
     Dates: start: 20111119, end: 20120914
  2. REBETOL [Suspect]
     Indication: HEPATITIS C
     Dosage: UNK
     Route: 048
     Dates: start: 20111119, end: 20120914
  3. VICTRELIS [Suspect]
     Indication: HEPATITIS C
     Dosage: UNK
     Route: 048
     Dates: start: 20111210, end: 20120914

REACTIONS (18)
  - Malignant melanoma [Unknown]
  - Mental disorder [Unknown]
  - Aggression [Unknown]
  - Application site haemorrhage [Unknown]
  - Nervousness [Unknown]
  - Anger [Unknown]
  - Melanocytic naevus [Unknown]
  - Epistaxis [Unknown]
  - White blood cell count decreased [Unknown]
  - Red blood cell count decreased [Unknown]
  - Eye disorder [Unknown]
  - Skin disorder [Unknown]
  - Alopecia [Not Recovered/Not Resolved]
  - Injection site haemorrhage [None]
  - Needle issue [None]
  - Blepharospasm [None]
  - Rash morbilliform [None]
  - Rash pustular [None]
